FAERS Safety Report 6951539-6 (Version None)
Quarter: 2010Q3

REPORT INFORMATION
  Report Type: 
  Country: None (occurrence: None)
  Receive Date: 20100828
  Receipt Date: 20100325
  Transmission Date: 20110219
  Serious: No
  Sender: FDA-Public Use
  Company Number: US-ABBOTT-10P-163-0635757-00

PATIENT
  Sex: Female
  Weight: 89.892 kg

DRUGS (4)
  1. NIASPAN [Suspect]
     Indication: HIGH DENSITY LIPOPROTEIN DECREASED
     Dates: start: 20100315
  2. DIOVAN [Concomitant]
     Indication: HYPERTENSION
  3. CARVEDILOL [Concomitant]
     Indication: HYPERTENSION
  4. LIPITOR [Concomitant]
     Indication: BLOOD CHOLESTEROL INCREASED

REACTIONS (3)
  - DYSPEPSIA [None]
  - OROPHARYNGEAL PAIN [None]
  - VOMITING [None]
